FAERS Safety Report 9203278 (Version 1)
Quarter: 2013Q2

REPORT INFORMATION
  Report Type: Spontaneous
  Country: US (occurrence: US)
  Receive Date: 20130402
  Receipt Date: 20130402
  Transmission Date: 20140414
  Serious: Yes (Other)
  Sender: FDA-Public Use
  Company Number: US-JNJFOC-20130312169

PATIENT
  Age: 83 Year
  Sex: Male
  Weight: 95.26 kg

DRUGS (3)
  1. ZYTIGA [Suspect]
     Indication: PROSTATE CANCER
     Dosage: 250 MG X 4
     Route: 048
     Dates: start: 201303
  2. COZAAR [Concomitant]
     Indication: GLAUCOMA
     Route: 065
  3. ZIOPTAN [Concomitant]
     Indication: GLAUCOMA
     Route: 065

REACTIONS (7)
  - Sinusitis [Not Recovered/Not Resolved]
  - Oesophageal pain [Not Recovered/Not Resolved]
  - Dysphagia [Not Recovered/Not Resolved]
  - Choking [Recovered/Resolved]
  - Vomiting [Recovered/Resolved]
  - Quality of life decreased [Not Recovered/Not Resolved]
  - Drug prescribing error [Unknown]
